FAERS Safety Report 23284035 (Version 2)
Quarter: 2023Q4

REPORT INFORMATION
  Report Type: Spontaneous
  Country: US (occurrence: US)
  Receive Date: 20231211
  Receipt Date: 20231211
  Transmission Date: 20240110
  Serious: Yes (Death, Life-Threatening, Other)
  Sender: FDA-Public Use
  Company Number: US-PFIZER INC-PV202300195559

PATIENT
  Age: 12 Year
  Sex: Male

DRUGS (1)
  1. METHOTREXATE SODIUM [Suspect]
     Active Substance: METHOTREXATE SODIUM
     Indication: B-cell type acute leukaemia
     Dosage: UNK (HDMTX)

REACTIONS (8)
  - Hepatotoxicity [Fatal]
  - Acute hepatic failure [Fatal]
  - Acute kidney injury [Unknown]
  - Toxicity to various agents [Recovered/Resolved]
  - Acute respiratory distress syndrome [Unknown]
  - Septic shock [Unknown]
  - Hepatorenal syndrome [Unknown]
  - Generalised oedema [Unknown]
